FAERS Safety Report 7150968-8 (Version None)
Quarter: 2010Q4

REPORT INFORMATION
  Report Type: 
  Country: None (occurrence: None)
  Receive Date: 20101210
  Receipt Date: 20101203
  Transmission Date: 20110411
  Serious: Yes (Other)
  Sender: FDA-Public Use
  Company Number: A0897665A

PATIENT
  Age: 46 Year
  Sex: Female

DRUGS (2)
  1. TREXIMET [Suspect]
     Indication: MIGRAINE
     Route: 048
     Dates: start: 20101201, end: 20101201
  2. NO CONCURRENT MEDICATION [Concomitant]

REACTIONS (11)
  - DIARRHOEA [None]
  - DISABILITY [None]
  - DISSOCIATION [None]
  - EUPHORIC MOOD [None]
  - FATIGUE [None]
  - FEELING ABNORMAL [None]
  - HALLUCINATION, VISUAL [None]
  - HANGOVER [None]
  - HYPERHIDROSIS [None]
  - IMPAIRED DRIVING ABILITY [None]
  - SOMNOLENCE [None]
